FAERS Safety Report 10363091 (Version 3)
Quarter: 2016Q2

REPORT INFORMATION
  Report Type: Spontaneous
  Country: ES (occurrence: ES)
  Receive Date: 20140805
  Receipt Date: 20160527
  Transmission Date: 20160815
  Serious: Yes (Death, Other)
  Sender: FDA-Public Use
  Company Number: ES-009507513-1408ESP000045

PATIENT
  Age: 81 Year
  Sex: Female

DRUGS (10)
  1. OLMESARTAN MEDOXOMIL. [Concomitant]
     Active Substance: OLMESARTAN MEDOXOMIL
     Dosage: 20 MG, QD
     Route: 048
     Dates: end: 20140622
  2. AZILECT [Concomitant]
     Active Substance: RASAGILINE MESYLATE
     Indication: PARKINSON^S DISEASE
     Dosage: 1 MG, QD
     Route: 048
     Dates: end: 20140622
  3. DULOXETINE HYDROCHLORIDE. [Concomitant]
     Active Substance: DULOXETINE HYDROCHLORIDE
     Dosage: 60 MG, QD
     Route: 048
     Dates: end: 20140622
  4. VENTOLIN [Concomitant]
     Active Substance: ALBUTEROL SULFATE
     Dosage: UNK
     Route: 055
     Dates: end: 20140622
  5. SERETIDE [Concomitant]
     Active Substance: FLUTICASONE PROPIONATE\SALMETEROL XINAFOATE
     Dosage: 2 DF, BID
     Route: 048
     Dates: end: 20140622
  6. IBANDRONIC ACID [Concomitant]
     Active Substance: IBANDRONIC ACID
     Dosage: 150 MG, QM
     Route: 048
     Dates: end: 20140622
  7. ASPIRIN. [Concomitant]
     Active Substance: ASPIRIN
     Dosage: 100 MG, QD
     Route: 048
     Dates: end: 20140622
  8. SINEMET PLUS 25/100 MG COMPRIMIDOS [Suspect]
     Active Substance: CARBIDOPA\LEVODOPA
     Indication: PARKINSON^S DISEASE
     Dosage: UNK
     Route: 048
     Dates: start: 2007, end: 20140620
  9. TRAZODONE HYDROCHLORIDE. [Concomitant]
     Active Substance: TRAZODONE HYDROCHLORIDE
     Dosage: 100 MG, QD
     Route: 048
     Dates: end: 20140622
  10. NOCTAMID [Concomitant]
     Active Substance: LORMETAZEPAM
     Dosage: 1 MG, QD
     Route: 048
     Dates: end: 20140622

REACTIONS (1)
  - Neuroleptic malignant syndrome [Fatal]

NARRATIVE: CASE EVENT DATE: 20140620
